FAERS Safety Report 15110298 (Version 1)
Quarter: 2018Q3

REPORT INFORMATION
  Report Type: Spontaneous
  Country: SE (occurrence: SE)
  Receive Date: 20180705
  Receipt Date: 20180705
  Transmission Date: 20181010
  Serious: Yes (Death, Hospitalization)
  Sender: FDA-Public Use
  Company Number: SE-PFIZER INC-2018269142

PATIENT
  Age: 48 Year
  Sex: Male

DRUGS (2)
  1. MORPHINE SULFATE. [Suspect]
     Active Substance: MORPHINE SULFATE
     Dosage: 10 MG, AS NEEDED
     Route: 048
  2. NAPROXEN. [Suspect]
     Active Substance: NAPROXEN
     Dosage: UNK

REACTIONS (4)
  - Gastrointestinal haemorrhage [Unknown]
  - Lung cancer metastatic [Fatal]
  - Urinary retention [Unknown]
  - Constipation [Unknown]

NARRATIVE: CASE EVENT DATE: 20140630
